FAERS Safety Report 5967531-4 (Version None)
Quarter: 2008Q4

REPORT INFORMATION
  Report Type: 
  Country: None (occurrence: None)
  Receive Date: 20081125
  Receipt Date: 20081117
  Transmission Date: 20090506
  Serious: Yes (Other)
  Sender: FDA-Public Use
  Company Number: JP-PFIZER INC-2008094602

PATIENT
  Age: 70 Year
  Sex: Female

DRUGS (6)
  1. EPLERENONE [Suspect]
     Indication: HYPERTENSION
     Dosage: DAILY DOSE:50MG
     Route: 048
     Dates: start: 20080930, end: 20081104
  2. ZESTRIL [Suspect]
     Route: 048
     Dates: start: 20080520, end: 20081104
  3. LOSARTAN POTASSIUM AND HYDROCHLOROTHIAZIDE [Suspect]
     Route: 048
     Dates: start: 20080520
  4. LIVALO [Concomitant]
     Route: 048
     Dates: start: 20080930
  5. ARTIST [Concomitant]
     Route: 048
     Dates: start: 20080520
  6. ASPIRIN [Concomitant]
     Route: 048
     Dates: start: 20080129

REACTIONS (1)
  - RENAL FAILURE [None]
